FAERS Safety Report 19422327 (Version 1)
Quarter: 2021Q2

REPORT INFORMATION
  Report Type: Spontaneous
  Country: US (occurrence: US)
  Receive Date: 20210616
  Receipt Date: 20210616
  Transmission Date: 20210717
  Serious: Yes (Hospitalization)
  Sender: FDA-Public Use
  Company Number: None

PATIENT
  Age: 67 Year
  Sex: Male
  Weight: 104.1 kg

DRUGS (1)
  1. CISPLATIN. [Suspect]
     Active Substance: CISPLATIN
     Dates: end: 20210518

REACTIONS (19)
  - Hypokalaemia [None]
  - Nausea [None]
  - Anaemia [None]
  - Hypocalcaemia [None]
  - Hepatic enzyme abnormal [None]
  - Dry mouth [None]
  - Lymphocyte count decreased [None]
  - Vomiting [None]
  - White blood cell count decreased [None]
  - Performance status decreased [None]
  - Acute kidney injury [None]
  - Decreased appetite [None]
  - Alanine aminotransferase increased [None]
  - Asthenia [None]
  - Leukopenia [None]
  - Hypomagnesaemia [None]
  - Dehydration [None]
  - Packed red blood cell transfusion [None]
  - Neutropenia [None]

NARRATIVE: CASE EVENT DATE: 20210525
